FAERS Safety Report 4367610-1 (Version None)
Quarter: 2004Q2

REPORT INFORMATION
  Report Type: 
  Country: None (occurrence: None)
  Receive Date: 20040526
  Receipt Date: 20040402
  Transmission Date: 20050107
  Serious: No
  Sender: FDA-Public Use
  Company Number: 2004US002069

PATIENT
  Age: 57 Year
  Sex: Male
  Weight: 80.5 kg

DRUGS (18)
  1. ALOXI [Suspect]
     Indication: PROPHYLAXIS OF NAUSEA AND VOMITING
     Dosage: 0.25 MG, SINGLE, INTRAVENOUS
     Route: 042
     Dates: start: 20031209, end: 20031209
  2. ALOXI [Suspect]
     Indication: PROPHYLAXIS OF NAUSEA AND VOMITING
     Dosage: 0.25 MG, SINGLE, INTRAVENOUS
     Route: 042
     Dates: start: 20031229, end: 20031229
  3. ALOXI [Suspect]
     Indication: PROPHYLAXIS OF NAUSEA AND VOMITING
     Dosage: 0.25 MG, SINGLE, INTRAVENOUS
     Route: 042
     Dates: start: 20040119, end: 20040119
  4. CISPLATIN [Concomitant]
  5. ALIMTA [Concomitant]
  6. METOPROLOL (METOPROLOL) [Concomitant]
  7. ELAVIL [Concomitant]
  8. HYDROCORTISONE [Concomitant]
  9. TESTOSTERONE [Concomitant]
  10. PROCRIT (ERYTHROPOIETIN) [Concomitant]
  11. FOLIC ACID [Concomitant]
  12. VITAMIN B12 [Concomitant]
  13. OXYCODONE HCL [Concomitant]
  14. DECADRON (DECADRON) [Concomitant]
  15. SENNA (SENNA) [Concomitant]
  16. FERROUS SULFATE TAB [Concomitant]
  17. MULTIVIT (VITAMINS NOS) [Concomitant]
  18. VITAMIN E [Concomitant]

REACTIONS (7)
  - ABDOMINAL DISCOMFORT [None]
  - CHEST DISCOMFORT [None]
  - FEELING HOT [None]
  - FLUSHING [None]
  - HYPERHIDROSIS [None]
  - HYPERSENSITIVITY [None]
  - URTICARIA [None]
